FAERS Safety Report 9063984 (Version 1)
Quarter: 2013Q1

REPORT INFORMATION
  Report Type: Report from Study
  Country: US (occurrence: US)
  Receive Date: 20130130
  Receipt Date: 20130130
  Transmission Date: 20140127
  Serious: No
  Sender: FDA-Public Use
  Company Number: US-ABBOTT-12P-163-0930541-00

PATIENT
  Age: 54 Year
  Sex: Female

DRUGS (21)
  1. HUMIRA 40 MG/0.8 ML PEN [Suspect]
     Indication: CROHN^S DISEASE
     Dosage: LOADING DOSE
     Dates: start: 20120427, end: 20120427
  2. HUMIRA 40 MG/0.8 ML PEN [Suspect]
     Route: 058
     Dates: start: 20120427
  3. MIRAPEX ER [Concomitant]
     Indication: RESTLESS LEGS SYNDROME
     Dosage: 75MG DAILY
  4. HYOSCYAMINE [Concomitant]
     Indication: AUTOMATIC BLADDER
     Dosage: 125MG DAILY
  5. MERCAPTOPURINE [Concomitant]
     Indication: CROHN^S DISEASE
     Dosage: 50MG 2 DAILY
  6. TEMAZEPAM [Concomitant]
     Indication: INSOMNIA
     Dosage: 30MG AS NEEDED
  7. ACYCLOVIR [Concomitant]
     Indication: HERPES ZOSTER
     Dosage: 200MG
  8. ESTRACE [Concomitant]
     Indication: MENOPAUSE
     Dosage: 0.01%
  9. OVER THE COUNTER ESTROVEN [Concomitant]
     Indication: PRODUCT USED FOR UNKNOWN INDICATION
  10. B12 [Concomitant]
     Indication: PRODUCT USED FOR UNKNOWN INDICATION
     Dosage: SHOTS MONTHLY
  11. DESONIE [Concomitant]
     Indication: RASH
     Dosage: 0.05%
  12. DESONIE [Concomitant]
     Indication: COELIAC DISEASE
  13. NAPROXEN [Concomitant]
     Indication: PAIN
     Dosage: 375MG AS NEEDED
  14. LOMOTIL [Concomitant]
     Indication: DIARRHOEA
  15. ARBONNE [Concomitant]
     Indication: PRODUCT USED FOR UNKNOWN INDICATION
     Dosage: WOMEN^S DAILY POWER PACK DAILY AT NIGHT
  16. CALCIUM [Concomitant]
     Indication: PRODUCT USED FOR UNKNOWN INDICATION
  17. PROAMEBA [Concomitant]
     Indication: PRODUCT USED FOR UNKNOWN INDICATION
  18. DULCOLAX [Concomitant]
     Indication: PRODUCT USED FOR UNKNOWN INDICATION
  19. CETIRIZINE HCI [Concomitant]
     Indication: MYCOTIC ALLERGY
     Dosage: 10MG
  20. PREDNISONE [Concomitant]
     Indication: PRODUCT USED FOR UNKNOWN INDICATION
     Dosage: 40 MG
  21. BENADRYL [Concomitant]
     Indication: PRODUCT USED FOR UNKNOWN INDICATION
     Dosage: 125 MG

REACTIONS (5)
  - Pollakiuria [Recovering/Resolving]
  - Injection site pain [Recovering/Resolving]
  - Injection site pain [Not Recovered/Not Resolved]
  - Rash [Unknown]
  - Injection site pruritus [Unknown]
